FAERS Safety Report 14610225 (Version 2)
Quarter: 2025Q4

REPORT INFORMATION
  Report Type: Spontaneous
  Country: EU (occurrence: EU)
  Receive Date: 20180307
  Receipt Date: 20251008
  Transmission Date: 20260118
  Serious: Yes (Other)
  Sender: ELI LILLY AND COMPANY
  Company Number: EU-SA-2017SA260383

PATIENT
  Age: 43 Year
  Sex: Male

DRUGS (7)
  1. ERBITUX [Suspect]
     Active Substance: CETUXIMAB
     Indication: Mucoepidermoid carcinoma
     Dosage: 400 MG/M2, SINGLE
     Route: 065
  2. ERBITUX [Suspect]
     Active Substance: CETUXIMAB
     Dosage: 150 MG/M2, CYCLICAL
     Route: 065
  3. DOCETAXEL [Suspect]
     Active Substance: DOCETAXEL
     Indication: Mucoepidermoid carcinoma
     Dosage: 75 MG/M2, CYCLICAL
     Route: 065
  4. CISPLATIN [Suspect]
     Active Substance: CISPLATIN
     Indication: Mucoepidermoid carcinoma
     Dosage: 75 MG/M2, CYCLICAL
     Route: 065
  5. FLUOROURACIL [Suspect]
     Active Substance: FLUOROURACIL
     Indication: Mucoepidermoid carcinoma
     Dosage: 750 MG/M2, CYCLICAL
     Route: 065
  6. DEXAMETHASONE [Concomitant]
     Active Substance: DEXAMETHASONE
     Indication: Premedication
     Dosage: 16 MG, DAILY
     Route: 065
  7. CIPROFLOXACIN [Concomitant]
     Active Substance: CIPROFLOXACIN
     Indication: Product used for unknown indication
     Dosage: 500 MG, BID
     Route: 065

REACTIONS (9)
  - Hypotension [Unknown]
  - Skin atrophy [Unknown]
  - Dry mouth [Unknown]
  - Telangiectasia [Unknown]
  - Anaemia [Unknown]
  - Alopecia [Unknown]
  - Neutropenia [Unknown]
  - Rash [Unknown]
  - Off label use [Unknown]
